FAERS Safety Report 5754808-0 (Version None)
Quarter: 2008Q2

REPORT INFORMATION
  Report Type: 
  Country: None (occurrence: None)
  Receive Date: 20080527
  Receipt Date: 20080515
  Transmission Date: 20081010
  Serious: Yes (Other)
  Sender: FDA-Public Use
  Company Number: 1-16148010

PATIENT
  Age: 14 Year
  Sex: Female
  Weight: 51.2565 kg

DRUGS (1)
  1. SOLODYN [Suspect]
     Indication: ACNE
     Dosage: 90 MG DAILY ORAL
     Route: 048
     Dates: start: 20080401, end: 20080423

REACTIONS (7)
  - EMOTIONAL DISORDER [None]
  - INTENTIONAL SELF-INJURY [None]
  - PHARYNGEAL OEDEMA [None]
  - RASH [None]
  - SUICIDE ATTEMPT [None]
  - SWOLLEN TONGUE [None]
  - URTICARIA [None]
